FAERS Safety Report 21566698 (Version 1)
Quarter: 2022Q4

REPORT INFORMATION
  Report Type: Spontaneous
  Country: US (occurrence: US)
  Receive Date: 20221108
  Receipt Date: 20221108
  Transmission Date: 20230113
  Serious: No
  Sender: FDA-Public Use
  Company Number: US-BAYER-2022A154774

PATIENT

DRUGS (1)
  1. ASTEPRO [Suspect]
     Active Substance: AZELASTINE HYDROCHLORIDE
     Dosage: UNK UNK, QD
     Route: 045

REACTIONS (3)
  - Therapeutic product effect incomplete [Unknown]
  - Intranasal paraesthesia [None]
  - Sneezing [None]
